FAERS Safety Report 4810157-6 (Version None)
Quarter: 2005Q4

REPORT INFORMATION
  Report Type: 
  Country: None (occurrence: None)
  Receive Date: 20051024
  Receipt Date: 20051006
  Transmission Date: 20060501
  Serious: Yes (Other)
  Sender: FDA-Public Use
  Company Number: ACO_0186_2005

PATIENT
  Age: 34 Year
  Sex: Male

DRUGS (4)
  1. SIRDALUD [Suspect]
     Dosage: DF PO
     Route: 048
  2. IBUSAL [Suspect]
     Dosage: DF
  3. ETHANOL [Suspect]
     Dosage: DF, PO
     Route: 048
  4. OTHER DRUGS NOT SPECIFIED [Suspect]
     Dosage: DF

REACTIONS (6)
  - ALCOHOL POISONING [None]
  - DRUG TOXICITY [None]
  - HOMICIDE [None]
  - RESTLESSNESS [None]
  - SUICIDAL IDEATION [None]
  - SUICIDE ATTEMPT [None]
